FAERS Safety Report 6691041-2 (Version None)
Quarter: 2010Q2

REPORT INFORMATION
  Report Type: 
  Country: None (occurrence: None)
  Receive Date: 20100421
  Receipt Date: 20100408
  Transmission Date: 20101027
  Serious: Yes (Hospitalization, Congenital Anomaly)
  Sender: FDA-Public Use
  Company Number: US-ELI_LILLY_AND_COMPANY-US201004003692

PATIENT

DRUGS (4)
  1. CYMBALTA [Suspect]
     Dosage: 60 MG, DAILY (1/D)
     Route: 064
  2. CYMBALTA [Suspect]
     Dosage: 60 MG, DAILY (1/D)
     Route: 063
  3. GEODON [Concomitant]
     Dosage: 40 MG, DAILY (1/D)
     Route: 064
  4. GEODON [Concomitant]
     Dosage: 40 MG, DAILY (1/D)
     Route: 063

REACTIONS (8)
  - ABNORMAL PALMAR/PLANTAR CREASES [None]
  - AGITATION [None]
  - CLEFT PALATE [None]
  - DRUG EXPOSURE DURING PREGNANCY [None]
  - DRUG EXPOSURE VIA BREAST MILK [None]
  - LOW SET EARS [None]
  - PIERRE ROBIN SYNDROME [None]
  - PREMATURE BABY [None]
